FAERS Safety Report 15866484 (Version 2)
Quarter: 2020Q4

REPORT INFORMATION
  Report Type: Spontaneous
  Country: US (occurrence: US)
  Receive Date: 20190125
  Receipt Date: 20201123
  Transmission Date: 20210113
  Serious: Yes (Other)
  Sender: FDA-Public Use
  Company Number: US-PFIZER INC-2017376083

PATIENT
  Age: 71 Year
  Sex: Female

DRUGS (3)
  1. GENOTROPIN [Suspect]
     Active Substance: SOMATROPIN
     Dosage: 0.3 MG, DAILY (X21 DAYS)
     Dates: start: 202010
  2. GENOTROPIN [Suspect]
     Active Substance: SOMATROPIN
     Indication: EMPTY SELLA SYNDROME
     Dosage: 0.2 MG, DAILY (ALTERNATING DOSE OF 0.2MG WITH 0.3MG, 7 DAYS A WEEK)
     Dates: start: 200103
  3. GENOTROPIN [Suspect]
     Active Substance: SOMATROPIN
     Dosage: 0.3 MG, DAILY (ALTERNATING DOSE OF 0.2MG WITH 0.3MG, 7 DAYS A WEEK)
     Dates: start: 200103

REACTIONS (16)
  - Non-high-density lipoprotein cholesterol increased [Unknown]
  - Rash [Unknown]
  - Blood pressure increased [Unknown]
  - Blood thyroid stimulating hormone decreased [Unknown]
  - Off label use [Unknown]
  - Blood urea nitrogen/creatinine ratio increased [Unknown]
  - Blood acid phosphatase abnormal [Unknown]
  - Product storage error [Unknown]
  - Blood glucose increased [Unknown]
  - Eosinophil count increased [Unknown]
  - High density lipoprotein decreased [Unknown]
  - Low density lipoprotein increased [Unknown]
  - Blood triglycerides increased [Unknown]
  - Glycosylated haemoglobin increased [Unknown]
  - Vitamin B12 increased [Unknown]
  - Product administration error [Unknown]

NARRATIVE: CASE EVENT DATE: 20180312
